FAERS Safety Report 4933516-X (Version None)
Quarter: 2006Q1

REPORT INFORMATION
  Report Type: 
  Country: None (occurrence: None)
  Receive Date: 20060306
  Receipt Date: 20051223
  Transmission Date: 20060701
  Serious: Yes (Other)
  Sender: FDA-Public Use
  Company Number: FR-SANOFI-SYNTHELABO-A02200503419

PATIENT
  Sex: Female

DRUGS (3)
  1. PLAQUENIL [Suspect]
     Indication: JESSNER'S LYMPHOCYTIC INFILTRATION
     Dosage: 400 MG
     Route: 048
     Dates: start: 20050201, end: 20051001
  2. ESTREVA [Concomitant]
     Dosage: UNK
     Route: 065
  3. UTROGESTAN [Concomitant]
     Dosage: UNK
     Route: 065

REACTIONS (1)
  - CATARACT [None]
